FAERS Safety Report 4323507-4 (Version None)
Quarter: 2004Q1

REPORT INFORMATION
  Report Type: 
  Country: None (occurrence: None)
  Receive Date: 20040323
  Receipt Date: 20040108
  Transmission Date: 20041129
  Serious: No
  Sender: FDA-Public Use
  Company Number: US_040199815

PATIENT
  Age: 69 Year
  Sex: Male

DRUGS (4)
  1. CIALIS [Suspect]
     Indication: ERECTILE DYSFUNCTION
     Dosage: 20 MG
     Dates: start: 20040102
  2. PIOGLITAZONE HCL [Concomitant]
  3. RAMIPRIL [Concomitant]
  4. METFORMIN HCL [Concomitant]

REACTIONS (4)
  - DIZZINESS [None]
  - DYSPEPSIA [None]
  - HEADACHE [None]
  - PAIN [None]
